FAERS Safety Report 4433560-5 (Version None)
Quarter: 2004Q3

REPORT INFORMATION
  Report Type: 
  Country: None (occurrence: None)
  Receive Date: 20040825
  Receipt Date: 20040825
  Transmission Date: 20050211
  Serious: Yes (Life-Threatening, Hospitalization, Other)
  Sender: FDA-Public Use
  Company Number: None

PATIENT
  Age: 53 Year
  Sex: Male
  Weight: 81.6475 kg

DRUGS (3)
  1. ZANAFLEX [Suspect]
     Indication: INJURY
     Dosage: 1 TWICE DAILY
  2. ZANAFLEX [Suspect]
     Indication: MUSCLE SPASMS
     Dosage: 1 TWICE DAILY
  3. ZANAFLEX [Suspect]
     Indication: SPINAL DISORDER
     Dosage: 1 TWICE DAILY

REACTIONS (5)
  - DISCOMFORT [None]
  - LOSS OF CONSCIOUSNESS [None]
  - MYOCARDIAL INFARCTION [None]
  - PAIN [None]
  - THROMBOSIS [None]
